FAERS Safety Report 25202365 (Version 2)
Quarter: 2025Q2

REPORT INFORMATION
  Report Type: Spontaneous
  Country: US (occurrence: US)
  Receive Date: 20250416
  Receipt Date: 20250421
  Transmission Date: 20250716
  Serious: Yes (Hospitalization)
  Sender: ALEXION PHARMACEUTICALS
  Company Number: US-AstraZeneca-CH-00849085A

PATIENT

DRUGS (5)
  1. FARXIGA [Suspect]
     Active Substance: DAPAGLIFLOZIN PROPANEDIOL
     Route: 065
  2. LASIX [Suspect]
     Active Substance: FUROSEMIDE
     Route: 065
  3. COREG [Suspect]
     Active Substance: CARVEDILOL
     Route: 065
  4. CARVEDILOL [Suspect]
     Active Substance: CARVEDILOL
     Route: 065
  5. ENTRESTO [Concomitant]
     Active Substance: SACUBITRIL\VALSARTAN
     Route: 065

REACTIONS (10)
  - Blister [Unknown]
  - Rash [Unknown]
  - Furuncle [Unknown]
  - Thermal burn [Unknown]
  - Scar [Unknown]
  - Emotional distress [Unknown]
  - Pain [Unknown]
  - Skin injury [Unknown]
  - Injury [Unknown]
  - Quality of life decreased [Unknown]
